FAERS Safety Report 12640843 (Version 1)
Quarter: 2016Q3

REPORT INFORMATION
  Report Type: Spontaneous
  Country: US (occurrence: US)
  Receive Date: 20160810
  Receipt Date: 20160810
  Transmission Date: 20161109
  Serious: No
  Sender: FDA-Public Use
  Company Number: US-ACTELION-A-US2016-140522

PATIENT
  Age: 70 Year
  Sex: Female

DRUGS (6)
  1. VITAMIN D3 [Concomitant]
     Active Substance: CHOLECALCIFEROL
     Dosage: UNK, AS DIRECTED
  2. TARGRETIN [Concomitant]
     Active Substance: BEXAROTENE
     Dosage: UNK, AS DIRECTED
  3. VALCHLOR [Suspect]
     Active Substance: MECHLORETHAMINE
     Indication: MYCOSIS FUNGOIDES
     Dosage: UNK, ONCE QOD X 1 WEEK, THEN ONCE DAILY
     Route: 061
     Dates: start: 20160711
  4. SYNTHROID [Concomitant]
     Active Substance: LEVOTHYROXINE SODIUM
     Dosage: UNK, AS DIRECTED
  5. LISINOPRIL. [Concomitant]
     Active Substance: LISINOPRIL
     Dosage: UNK, AS DIRECTED
  6. LIPITOR [Concomitant]
     Active Substance: ATORVASTATIN CALCIUM
     Dosage: UNK, AS DIRECTED

REACTIONS (3)
  - Application site discharge [Unknown]
  - Drug hypersensitivity [Unknown]
  - Application site vesicles [Unknown]
